FAERS Safety Report 6537553-3 (Version None)
Quarter: 2010Q1

REPORT INFORMATION
  Report Type: 
  Country: None (occurrence: None)
  Receive Date: 20100114
  Receipt Date: 20100106
  Transmission Date: 20100710
  Serious: Yes (Other)
  Sender: FDA-Public Use
  Company Number: US-JNJCH-2010000393

PATIENT
  Age: 49 Year
  Sex: Female
  Weight: 81.6 kg

DRUGS (5)
  1. LISTERINE WHITENING PRE-BRUSH RINSE [Suspect]
     Indication: DENTAL DISORDER PROPHYLAXIS
     Dosage: TEXT:HALF A CAPFUL ONCE DAILY
     Route: 048
     Dates: start: 20091201, end: 20091201
  2. CHOLESTEROL- AND TRIGLYCERIDE REDUCERS [Concomitant]
     Indication: HYPERCHOLESTEROLAEMIA
     Dosage: TEXT:10 MG
     Route: 065
  3. CHOLESTEROL- AND TRIGLYCERIDE REDUCERS [Concomitant]
     Dosage: TEXT:10 MG
     Route: 065
  4. LOVASTATIN [Concomitant]
     Indication: HYPERCHOLESTEROLAEMIA
     Dosage: TEXT:40 MG DAILY
     Route: 065
  5. METOPROLOL [Concomitant]
     Indication: HYPERTENSION
     Dosage: TEXT:50 MG
     Route: 065

REACTIONS (2)
  - NEURALGIA [None]
  - TOOTH DELAMINATION [None]
